FAERS Safety Report 10055733 (Version 3)
Quarter: 2014Q3

REPORT INFORMATION
  Report Type: Report from Study
  Country: JP (occurrence: JP)
  Receive Date: 20140403
  Receipt Date: 20140711
  Transmission Date: 20150326
  Serious: Yes (Death)
  Sender: FDA-Public Use
  Company Number: JP-ABBVIE-14P-087-1220303-00

PATIENT
  Age: 49 Year
  Sex: Male

DRUGS (1)
  1. LIPACREON GRANULES 300MG SACHET [Suspect]
     Active Substance: PANCRELIPASE
     Indication: PANCREATIC INSUFFICIENCY
     Route: 048
     Dates: start: 20130412, end: 20130603

REACTIONS (1)
  - Alcohol poisoning [Fatal]

NARRATIVE: CASE EVENT DATE: 20130603
